FAERS Safety Report 12330468 (Version 1)
Quarter: 2016Q2

REPORT INFORMATION
  Report Type: Spontaneous
  Country: US (occurrence: None)
  Receive Date: 20160503
  Receipt Date: 20160503
  Transmission Date: 20160815
  Serious: Yes (Other)
  Sender: FDA-Public Use
  Company Number: None

PATIENT
  Age: 27 Year
  Sex: Male
  Weight: 78.02 kg

DRUGS (3)
  1. METHYLPREDNISOLONE. [Suspect]
     Active Substance: METHYLPREDNISOLONE
     Indication: INNER EAR DISORDER
     Dosage: MED TAPER PACK
     Route: 048
     Dates: start: 20160429, end: 20160430
  2. CLONAZEPAM. [Concomitant]
     Active Substance: CLONAZEPAM
  3. METHYLPREDNISOLONE. [Suspect]
     Active Substance: METHYLPREDNISOLONE
     Indication: NASOPHARYNGITIS
     Dosage: MED TAPER PACK
     Route: 048
     Dates: start: 20160429, end: 20160430

REACTIONS (5)
  - Psychotic disorder [None]
  - Sleep disorder [None]
  - Anxiety [None]
  - Feeding disorder [None]
  - Activities of daily living impaired [None]

NARRATIVE: CASE EVENT DATE: 20160430
